FAERS Safety Report 25664644 (Version 2)
Quarter: 2025Q3

REPORT INFORMATION
  Report Type: Spontaneous
  Country: US (occurrence: US)
  Receive Date: 20250811
  Receipt Date: 20250826
  Transmission Date: 20251021
  Serious: Yes (Death, Life-Threatening, Hospitalization)
  Sender: TEVA
  Company Number: US-TEVA-VS-3360119

PATIENT
  Age: 78 Year
  Sex: Male

DRUGS (6)
  1. METRONIDAZOLE [Suspect]
     Active Substance: METRONIDAZOLE
     Indication: Sepsis
     Route: 042
  2. AMIODARONE [Suspect]
     Active Substance: AMIODARONE
     Indication: Atrial fibrillation
     Route: 065
  3. VANCOMYCIN [Suspect]
     Active Substance: VANCOMYCIN
     Indication: Sepsis
     Route: 042
  4. PHENYLEPHRINE [Suspect]
     Active Substance: PHENYLEPHRINE
     Indication: Hypotension
     Route: 065
  5. NOREPINEPHRINE [Suspect]
     Active Substance: NOREPINEPHRINE
     Indication: Hypotension
     Route: 065
  6. CEFTRIAXONE [Suspect]
     Active Substance: CEFTRIAXONE
     Indication: Sepsis
     Route: 042

REACTIONS (1)
  - Drug ineffective [Fatal]
